FAERS Safety Report 4331454-7 (Version None)
Quarter: 2004Q1

REPORT INFORMATION
  Report Type: 
  Country: None (occurrence: None)
  Receive Date: 20040329
  Receipt Date: 20040317
  Transmission Date: 20041129
  Serious: Yes (Other)
  Sender: FDA-Public Use
  Company Number: US012887

PATIENT
  Age: 39 Year
  Sex: Male
  Weight: 54.4316 kg

DRUGS (3)
  1. ACTIQ [Suspect]
     Indication: BACK PAIN
     Dosage: 600 UG Q4HR BUCCAL
     Route: 002
     Dates: start: 20040101, end: 20040315
  2. PERCOCET [Concomitant]
  3. XANAX [Concomitant]

REACTIONS (2)
  - CONVULSION [None]
  - RASH PAPULAR [None]
